FAERS Safety Report 17966514 (Version 1)
Quarter: 2020Q3

REPORT INFORMATION
  Report Type: Spontaneous
  Country: ES (occurrence: ES)
  Receive Date: 20200701
  Receipt Date: 20200701
  Transmission Date: 20201103
  Serious: Yes (Hospitalization)
  Sender: FDA-Public Use
  Company Number: ES-ROCHE-2581023

PATIENT
  Age: 49 Year
  Sex: Male

DRUGS (3)
  1. FAMPRIDINE [Concomitant]
     Active Substance: DALFAMPRIDINE
  2. MABTHERA [Suspect]
     Active Substance: RITUXIMAB
     Indication: PRIMARY PROGRESSIVE MULTIPLE SCLEROSIS
     Route: 065
     Dates: start: 20170125
  3. BIOTIN [Concomitant]
     Active Substance: BIOTIN

REACTIONS (4)
  - Intentional product use issue [Unknown]
  - Off label use [Unknown]
  - Pneumonia [Recovered/Resolved]
  - COVID-19 [Recovered/Resolved]

NARRATIVE: CASE EVENT DATE: 20200420
